FAERS Safety Report 10187492 (Version 1)
Quarter: 2014Q2

REPORT INFORMATION
  Report Type: Spontaneous
  Country: US (occurrence: US)
  Receive Date: 20140522
  Receipt Date: 20140522
  Transmission Date: 20141212
  Serious: No
  Sender: FDA-Public Use
  Company Number: US-SANOFI-AVENTIS-2013SA075186

PATIENT
  Age: 60 Year
  Sex: Male

DRUGS (5)
  1. LANTUS [Suspect]
     Route: 051
  2. METFORMIN [Concomitant]
  3. OMEPRAZOLE [Concomitant]
  4. UNKNOWDRUG [Concomitant]
  5. LISINOPRIL [Concomitant]

REACTIONS (1)
  - Lipase increased [Unknown]
